FAERS Safety Report 4923448-5 (Version None)
Quarter: 2006Q1

REPORT INFORMATION
  Report Type: 
  Country: None (occurrence: None)
  Receive Date: 20060227
  Receipt Date: 20060215
  Transmission Date: 20060701
  Serious: Yes (Other)
  Sender: FDA-Public Use
  Company Number: PHBS2006BR02698

PATIENT
  Age: 94 Year
  Sex: Female
  Weight: 65 kg

DRUGS (3)
  1. VITAMINS [Concomitant]
  2. RAMIPRIL [Concomitant]
     Indication: HYPERTENSION
     Dosage: UNK, QD
     Route: 048
  3. CODATEN [Suspect]
     Indication: BACK PAIN
     Dosage: 1 DF, BID
     Route: 048

REACTIONS (7)
  - ABNORMAL BEHAVIOUR [None]
  - ASTHENIA [None]
  - DEPRESSED MOOD [None]
  - DEPRESSION [None]
  - MALAISE [None]
  - SOMNOLENCE [None]
  - SPEECH DISORDER [None]
